FAERS Safety Report 8214073-1 (Version None)
Quarter: 2012Q1

REPORT INFORMATION
  Report Type: 
  Country: None (occurrence: None)
  Receive Date: 20120314
  Receipt Date: 20120314
  Transmission Date: 20120608
  Serious: Yes (Other)
  Sender: FDA-Public Use
  Company Number: None

PATIENT
  Age: 69 Year
  Sex: Male
  Weight: 102.3 kg

DRUGS (1)
  1. DALFAMPRIDINE [Suspect]
     Indication: MULTIPLE SCLEROSIS
     Dosage: 10 MG BID PO
     Route: 048
     Dates: start: 20120114, end: 20120123

REACTIONS (7)
  - BACK PAIN [None]
  - CONSTIPATION [None]
  - INSOMNIA [None]
  - ATRIAL FIBRILLATION [None]
  - DECREASED APPETITE [None]
  - HYPERTENSION [None]
  - HEART RATE INCREASED [None]
